FAERS Safety Report 16913808 (Version 1)
Quarter: 2019Q4

REPORT INFORMATION
  Report Type: Spontaneous
  Country: FR (occurrence: FR)
  Receive Date: 20191014
  Receipt Date: 20191014
  Transmission Date: 20200122
  Serious: Yes (Congenital Anomaly)
  Sender: FDA-Public Use
  Company Number: FR-PFIZER INC-2019435518

PATIENT
  Sex: Male

DRUGS (1)
  1. DOSTINEX [Suspect]
     Active Substance: CABERGOLINE
     Indication: PITUITARY TUMOUR BENIGN
     Dosage: 0.5 MG, WEEKLY
     Route: 064
     Dates: start: 20190120, end: 20190124

REACTIONS (3)
  - Maternal exposure during pregnancy [Not Recovered/Not Resolved]
  - Pelvic kidney [Not Recovered/Not Resolved]
  - Renal fusion anomaly [Not Recovered/Not Resolved]

NARRATIVE: CASE EVENT DATE: 20190726
